FAERS Safety Report 11055213 (Version 1)
Quarter: 2015Q2

REPORT INFORMATION
  Report Type: Spontaneous
  Country: US (occurrence: US)
  Receive Date: 20150422
  Receipt Date: 20150422
  Transmission Date: 20150821
  Serious: No
  Sender: FDA-Public Use
  Company Number: US-SA-2015SA034342

PATIENT
  Age: 68 Year
  Sex: Male

DRUGS (2)
  1. LOVENOX [Suspect]
     Active Substance: ENOXAPARIN SODIUM
     Indication: THROMBOSIS
     Route: 065
     Dates: start: 20150315
  2. WARFARIN [Concomitant]
     Active Substance: WARFARIN

REACTIONS (5)
  - Heart rate increased [Unknown]
  - Injection site pain [Unknown]
  - Blood pressure increased [Unknown]
  - Injection site bruising [Unknown]
  - Injection site discolouration [Unknown]
